FAERS Safety Report 23607051 (Version 1)
Quarter: 2024Q1

REPORT INFORMATION
  Report Type: Spontaneous
  Country: RO (occurrence: None)
  Receive Date: 20240307
  Receipt Date: 20240307
  Transmission Date: 20240410
  Serious: Yes (Death)
  Sender: FDA-Public Use
  Company Number: 2024A056388

PATIENT
  Sex: Female

DRUGS (1)
  1. ONDEXXYA [Suspect]
     Active Substance: ANDEXANET ALFA
     Indication: Haemorrhage intracranial
     Dosage: 400.0MG ONCE/SINGLE ADMINISTRATION
     Route: 042
     Dates: start: 20230713, end: 20230713

REACTIONS (1)
  - Death [Fatal]

NARRATIVE: CASE EVENT DATE: 20230714
